FAERS Safety Report 4893527-X (Version None)
Quarter: 2006Q1

REPORT INFORMATION
  Report Type: 
  Country: None (occurrence: None)
  Receive Date: 20060127
  Receipt Date: 20051229
  Transmission Date: 20060701
  Serious: Yes (Hospitalization)
  Sender: FDA-Public Use
  Company Number: FR-JNJFOC-20060102407

PATIENT
  Age: 67 Year
  Sex: Female

DRUGS (3)
  1. TOPALGIC [Suspect]
     Indication: SHOULDER PAIN
     Route: 048
  2. AMLOR [Concomitant]
     Route: 048
  3. CELEBREX [Concomitant]
     Route: 048

REACTIONS (8)
  - BODY TEMPERATURE DECREASED [None]
  - CHEST DISCOMFORT [None]
  - HOT FLUSH [None]
  - HYPERHIDROSIS [None]
  - MALAISE [None]
  - PHOTOPSIA [None]
  - VERTIGO [None]
  - VOMITING [None]
